FAERS Safety Report 16921880 (Version 1)
Quarter: 2019Q4

REPORT INFORMATION
  Report Type: Spontaneous
  Country: DE (occurrence: DE)
  Receive Date: 20191015
  Receipt Date: 20191015
  Transmission Date: 20200122
  Serious: Yes (Hospitalization, Other)
  Sender: FDA-Public Use
  Company Number: NVSC2019DE002667

PATIENT
  Sex: Male

DRUGS (2)
  1. PAZOPANIB [Suspect]
     Active Substance: PAZOPANIB
     Indication: TRANSITIONAL CELL CARCINOMA METASTATIC
     Dosage: 200 MG, QD
     Route: 048
  2. VINFLUNINE [Suspect]
     Active Substance: VINFLUNINE
     Indication: TRANSITIONAL CELL CARCINOMA METASTATIC
     Dosage: UNK
     Route: 042

REACTIONS (2)
  - Toxicity to various agents [Unknown]
  - Febrile neutropenia [Unknown]
